FAERS Safety Report 21997315 (Version 2)
Quarter: 2023Q2

REPORT INFORMATION
  Report Type: Spontaneous
  Country: US (occurrence: US)
  Receive Date: 20230216
  Receipt Date: 20230421
  Transmission Date: 20230721
  Serious: No
  Sender: FDA-Public Use
  Company Number: US-GBT-020088

PATIENT
  Age: 27 Year
  Sex: Male

DRUGS (1)
  1. OXBRYTA [Suspect]
     Active Substance: VOXELOTOR
     Indication: Sickle cell disease
     Route: 048
     Dates: start: 20230202, end: 20230301

REACTIONS (3)
  - Vomiting [Unknown]
  - Therapy cessation [Unknown]
  - Nausea [Unknown]

NARRATIVE: CASE EVENT DATE: 20230202
